FAERS Safety Report 10931254 (Version 1)
Quarter: 2015Q1

REPORT INFORMATION
  Report Type: Spontaneous
  Country: US (occurrence: US)
  Receive Date: 20150319
  Receipt Date: 20150319
  Transmission Date: 20150721
  Serious: No
  Sender: FDA-Public Use
  Company Number: US-SHIRE-US201502369

PATIENT
  Age: 41 Year
  Sex: Male
  Weight: 104.31 kg

DRUGS (2)
  1. LIALDA [Suspect]
     Active Substance: MESALAMINE
     Indication: IRRITABLE BOWEL SYNDROME
     Dosage: 4.8 G (FOUR 1.2G TABLETS), 1X/DAY:QD
     Route: 048
     Dates: start: 20130916
  2. PREDNISONE. [Concomitant]
     Active Substance: PREDNISONE
     Indication: IRRITABLE BOWEL SYNDROME
     Dosage: 10 MG, UNKNOWN (AS DIRECTED)
     Route: 048
     Dates: start: 20131025

REACTIONS (2)
  - Medication residue present [Not Recovered/Not Resolved]
  - Product use issue [Not Recovered/Not Resolved]

NARRATIVE: CASE EVENT DATE: 20130916
